FAERS Safety Report 6519311-9 (Version None)
Quarter: 2009Q4

REPORT INFORMATION
  Report Type: 
  Country: None (occurrence: None)
  Receive Date: 20091228
  Receipt Date: 20091222
  Transmission Date: 20100525
  Serious: Yes (Hospitalization)
  Sender: FDA-Public Use
  Company Number: CA-EISAI INC.-E2020-05596-SPO-CA

PATIENT
  Sex: Female

DRUGS (8)
  1. ARICEPT [Suspect]
     Route: 048
     Dates: start: 20090820
  2. EXELON [Suspect]
     Route: 061
     Dates: start: 20090530, end: 20090801
  3. EFFEXOR XR [Concomitant]
     Route: 048
     Dates: start: 20080821
  4. ATENOLOL (RATIO) [Concomitant]
     Route: 048
     Dates: start: 20040319
  5. IMDUR [Concomitant]
     Route: 048
     Dates: start: 20050630, end: 20091217
  6. SIMVASTATIN (PMS) [Concomitant]
     Route: 048
     Dates: start: 20080720, end: 20091210
  7. VITAMIN B-12 [Concomitant]
     Route: 048
     Dates: start: 20080821, end: 20091210
  8. FOLIC ACID (EURO) [Concomitant]
     Route: 048
     Dates: start: 20080821, end: 20091210

REACTIONS (1)
  - BLADDER CANCER [None]
